FAERS Safety Report 13641988 (Version 2)
Quarter: 2017Q2

REPORT INFORMATION
  Report Type: Spontaneous
  Country: MY (occurrence: MY)
  Receive Date: 20170612
  Receipt Date: 20170615
  Transmission Date: 20170830
  Serious: Yes (Death, Hospitalization, Other)
  Sender: FDA-Public Use
  Company Number: PHHY2017MY085867

PATIENT
  Age: 11 Month
  Sex: Female

DRUGS (1)
  1. VOLTAREN [Suspect]
     Active Substance: DICLOFENAC SODIUM
     Indication: PYREXIA
     Dosage: 6.25 MG, WHEN NEEDED OR TID
     Route: 065
     Dates: start: 20170425

REACTIONS (14)
  - Condition aggravated [Unknown]
  - Nail discolouration [Unknown]
  - Fatigue [Unknown]
  - Drug prescribing error [Unknown]
  - Skin discolouration [Unknown]
  - Hypersomnia [Unknown]
  - Pyrexia [Unknown]
  - Peripheral coldness [Unknown]
  - Product use issue [Unknown]
  - Diarrhoea [Unknown]
  - Lip discolouration [Unknown]
  - Encephalopathy neonatal [Fatal]
  - Stress ulcer [Unknown]
  - Haematemesis [Unknown]

NARRATIVE: CASE EVENT DATE: 20170425
